FAERS Safety Report 10752340 (Version 2)
Quarter: 2015Q1

REPORT INFORMATION
  Report Type: Spontaneous
  Country: US (occurrence: US)
  Receive Date: 20150130
  Receipt Date: 20150206
  Transmission Date: 20150721
  Serious: Yes (Other)
  Sender: FDA-Public Use
  Company Number: IT-GLAXOSMITHKLINE-IT2015GSK012084

PATIENT
  Age: 59 Year
  Sex: Female

DRUGS (1)
  1. MELPHALAN [Suspect]
     Active Substance: MELPHALAN
     Indication: PLASMA CELL MYELOMA
     Dosage: 200 MG/M2, UNK

REACTIONS (3)
  - Encephalopathy [Recovering/Resolving]
  - Gastrointestinal toxicity [Recovering/Resolving]
  - Mucosal inflammation [Recovering/Resolving]
